FAERS Safety Report 10714907 (Version 1)
Quarter: 2015Q1

REPORT INFORMATION
  Report Type: Spontaneous
  Country: DE (occurrence: DE)
  Receive Date: 20150115
  Receipt Date: 20150115
  Transmission Date: 20150721
  Serious: Yes (Death, Other)
  Sender: FDA-Public Use
  Company Number: DE-ABBVIE-14P-062-1313178-00

PATIENT
  Age: 86 Year
  Sex: Male
  Weight: 50 kg

DRUGS (4)
  1. RISPERIDON [Concomitant]
     Active Substance: RISPERIDONE
     Indication: FEAR
  2. RISPERIDON [Concomitant]
     Active Substance: RISPERIDONE
     Indication: ANXIETY
     Dates: start: 20140805
  3. QUETIAPIN [Concomitant]
     Active Substance: QUETIAPINE
     Indication: SLEEP DISORDER
     Dates: start: 201404
  4. DUODOPA [Suspect]
     Active Substance: CARBIDOPA\LEVODOPA
     Indication: PARKINSON^S DISEASE
     Dosage: MD 10.3 ML,CRD 2.6 ML/H,ED 2.0 ML
     Route: 050
     Dates: start: 20070717

REACTIONS (2)
  - Cerebrovascular accident [Fatal]
  - Cardiac arrest [Fatal]

NARRATIVE: CASE EVENT DATE: 20141118
